FAERS Safety Report 8362473-1 (Version None)
Quarter: 2012Q2

REPORT INFORMATION
  Report Type: 
  Country: None (occurrence: None)
  Receive Date: 20120514
  Receipt Date: 20120514
  Transmission Date: 20120825
  Serious: Yes (Hospitalization, Other)
  Sender: FDA-Public Use
  Company Number: None

PATIENT
  Age: 93 Year
  Sex: Female
  Weight: 54.93 kg

DRUGS (12)
  1. MULTAQ [Suspect]
     Indication: ATRIAL FIBRILLATION
     Dosage: 400 MG TWICE DAILY PO
     Route: 048
     Dates: start: 20110429, end: 20120501
  2. HYDROCHLOROTHIAZIDE [Concomitant]
  3. LISINOPRIL [Concomitant]
  4. RANITIDINE HCL [Concomitant]
  5. DILTIAZEM HCL CR -DILTIA XT- [Concomitant]
  6. MULTIPLE VITAMINS-MINERALS [Concomitant]
  7. MULTAQ [Suspect]
  8. OMEGA-3 FATTY ACIDS -FISH OIL DOUBLE STRENGTH- [Concomitant]
  9. SIMVASTATIN [Concomitant]
  10. WARFARIN SODIUM [Concomitant]
  11. CALCIUM [Concomitant]
  12. ASPIRIN [Concomitant]

REACTIONS (2)
  - EXTRASYSTOLES [None]
  - BRADYCARDIA [None]
